FAERS Safety Report 17685656 (Version 1)
Quarter: 2020Q2

REPORT INFORMATION
  Report Type: Spontaneous
  Country: US (occurrence: US)
  Receive Date: 20200419
  Receipt Date: 20200419
  Transmission Date: 20200714
  Serious: Yes (Other)
  Sender: FDA-Public Use
  Company Number: None

PATIENT
  Age: 45 Year
  Sex: Male
  Weight: 96.75 kg

DRUGS (1)
  1. EXTENZE PLUS DIETARY SUPPLEMENT MALE ENHANCEMENT [Suspect]
     Active Substance: DIETARY SUPPLEMENT
     Indication: ERECTILE DYSFUNCTION
     Dosage: ?          OTHER STRENGTH:MG;QUANTITY:1 TABLET(S);?
     Route: 048
     Dates: start: 20200419, end: 20200419

REACTIONS (9)
  - Nausea [None]
  - Product taste abnormal [None]
  - Vomiting [None]
  - Feeding disorder [None]
  - Palpitations [None]
  - Dysgeusia [None]
  - Dizziness [None]
  - Headache [None]
  - Nervousness [None]

NARRATIVE: CASE EVENT DATE: 20200419
